FAERS Safety Report 4820997-5 (Version None)
Quarter: 2005Q4

REPORT INFORMATION
  Report Type: 
  Country: None (occurrence: None)
  Receive Date: 20051104
  Receipt Date: 20050922
  Transmission Date: 20060501
  Serious: Yes (Life-Threatening, Hospitalization)
  Sender: FDA-Public Use
  Company Number: AU-SANOFI-SYNTHELABO-A01200506478

PATIENT
  Sex: Male

DRUGS (8)
  1. ELOXATIN [Suspect]
     Route: 042
  2. WARFARIN SODIUM [Concomitant]
  3. DIGOXIN [Concomitant]
     Dates: start: 20050905, end: 20050905
  4. LANOXIN [Concomitant]
     Dates: start: 20050906
  5. ENOXAPARIN SODIUM [Concomitant]
     Route: 058
     Dates: start: 20050905, end: 20050906
  6. CEFTRIAXONE [Concomitant]
     Dates: start: 20050905, end: 20050906
  7. RULIDE [Concomitant]
     Dates: start: 20050905, end: 20050906
  8. MAGMIN [Concomitant]
     Dates: start: 20050905, end: 20050905

REACTIONS (2)
  - CEREBRAL ATROPHY [None]
  - RESPIRATORY ARREST [None]
